FAERS Safety Report 24888163 (Version 4)
Quarter: 2025Q2

REPORT INFORMATION
  Report Type: Report from Study
  Country: US (occurrence: US)
  Receive Date: 20250127
  Receipt Date: 20250409
  Transmission Date: 20250717
  Serious: No
  Sender: ACADIA PHARMACEUTICALS
  Company Number: US-ACADIA PHARMACEUTICALS INC.-ACA-2025-TRF-000320

PATIENT
  Age: 12 Year
  Sex: Female

DRUGS (10)
  1. DAYBUE [Suspect]
     Active Substance: TROFINETIDE
     Indication: Rett syndrome
     Dosage: 50 MILLILITER, BID
     Dates: start: 20241211
  2. DAYBUE [Suspect]
     Active Substance: TROFINETIDE
     Dosage: 25 MILLILITER, BID
     Route: 065
  3. AUGMENTIN [Concomitant]
     Active Substance: AMOXICILLIN\CLAVULANATE POTASSIUM
     Dosage: 10 MILLILITER, BID (400-57 MG /5 ML SUS)
     Route: 048
  4. XCOPRI [Concomitant]
     Active Substance: CENOBAMATE
     Dosage: 100 MILLIGRAM, QD
     Route: 048
     Dates: start: 20240911
  5. ONFI [Concomitant]
     Active Substance: CLOBAZAM
     Dosage: 3 ML, BID (7.5 MG TOTAL) (2.5 MG/ML) (ONFI)
     Route: 048
  6. VALTOCO [Concomitant]
     Active Substance: DIAZEPAM
  7. KEPPRA [Concomitant]
     Active Substance: LEVETIRACETAM
     Dosage: 7 ML, BID ((700 MG TOTAL) ((KEPPRA) 100 MG/ML ORAL)
     Route: 048
  8. MIRALAX [Concomitant]
     Active Substance: POLYETHYLENE GLYCOL 3350
  9. CLOBAZAM [Concomitant]
     Active Substance: CLOBAZAM
     Dosage: 7.5 MILLIGRAM, BID
     Dates: start: 20241008
  10. LEVETIRACETAM [Concomitant]
     Active Substance: LEVETIRACETAM
     Dosage: 700 MILLIGRAM, BID
     Dates: start: 20170921

REACTIONS (2)
  - Diarrhoea [Not Recovered/Not Resolved]
  - Intentional underdose [Not Recovered/Not Resolved]

NARRATIVE: CASE EVENT DATE: 20250115
